FAERS Safety Report 13038858 (Version 1)
Quarter: 2016Q4

REPORT INFORMATION
  Report Type: Other
  Country: KR (occurrence: KR)
  Receive Date: 20161219
  Receipt Date: 20161219
  Transmission Date: 20170207
  Serious: Yes (Hospitalization)
  Sender: FDA-Public Use
  Company Number: KR-LUPIN PHARMACEUTICALS INC.-2016-04771

PATIENT
  Age: 71 Year
  Sex: Male

DRUGS (8)
  1. ZOLPIDEM CONTROLLED RELEASE [Suspect]
     Active Substance: ZOLPIDEM TARTRATE
     Indication: PERIODIC LIMB MOVEMENT DISORDER
     Route: 065
  2. ATIVAN [Concomitant]
     Active Substance: LORAZEPAM
     Indication: PERIODIC LIMB MOVEMENT DISORDER
     Route: 065
  3. PRAMIPEXOLE. [Concomitant]
     Active Substance: PRAMIPEXOLE
     Indication: PERIODIC LIMB MOVEMENT DISORDER
     Route: 065
  4. PRAMIPEXOLE. [Concomitant]
     Active Substance: PRAMIPEXOLE
     Indication: SLEEP APNOEA SYNDROME
  5. ZOLPIDEM CONTROLLED RELEASE [Suspect]
     Active Substance: ZOLPIDEM TARTRATE
     Indication: PERIODIC LIMB MOVEMENT DISORDER
     Route: 065
  6. ZOLPIDEM CONTROLLED RELEASE [Suspect]
     Active Substance: ZOLPIDEM TARTRATE
     Indication: SLEEP APNOEA SYNDROME
  7. ZOLPIDEM CONTROLLED RELEASE [Suspect]
     Active Substance: ZOLPIDEM TARTRATE
     Indication: SLEEP APNOEA SYNDROME
  8. ATIVAN [Concomitant]
     Active Substance: LORAZEPAM
     Indication: SLEEP APNOEA SYNDROME

REACTIONS (3)
  - Abnormal behaviour [Recovered/Resolved]
  - Anterograde amnesia [Recovered/Resolved]
  - Sleep-related eating disorder [Recovered/Resolved]
